FAERS Safety Report 5125504-8 (Version None)
Quarter: 2006Q3

REPORT INFORMATION
  Report Type: 
  Country: None (occurrence: None)
  Receive Date: 20060822
  Receipt Date: 20060703
  Transmission Date: 20061208
  Serious: No
  Sender: FDA-Public Use
  Company Number: PHEH2006US08576

PATIENT
  Age: 39 Year
  Sex: Female

DRUGS (1)
  1. ENABLEX [Suspect]

REACTIONS (1)
  - STRESS URINARY INCONTINENCE [None]
